FAERS Safety Report 8872258 (Version 1)
Quarter: 2012Q4

REPORT INFORMATION
  Report Type: 
  Country: US (occurrence: US)
  Receive Date: 20121026
  Receipt Date: 20121026
  Transmission Date: 20130627
  Serious: No
  Sender: FDA-Public Use
  Company Number: US-AMGEN-USASP2012051730

PATIENT
  Age: 53 Year
  Sex: Female

DRUGS (7)
  1. ENBREL [Suspect]
     Indication: PRODUCT USED FOR UNKNOWN INDICATION
     Dosage: 50 mg, qwk
     Route: 058
  2. FUROSEMID                          /00032601/ [Concomitant]
     Dosage: 20 mg, UNK
  3. HYDROXYCHLOROQUINE [Concomitant]
     Dosage: 200 mg, UNK
  4. LEXAPRO [Concomitant]
     Dosage: 10 mg, UNK
  5. SULFASALAZIN [Concomitant]
     Dosage: 500 mg, UNK
  6. DICLOFENAC [Concomitant]
     Dosage: 100 mg, UNK (100MG XR)
  7. POTASSIUM [Concomitant]
     Dosage: 25MEQ EF

REACTIONS (1)
  - Drug ineffective [Unknown]
